FAERS Safety Report 5898959-9 (Version None)
Quarter: 2008Q3

REPORT INFORMATION
  Report Type: 
  Country: None (occurrence: None)
  Receive Date: 20080925
  Receipt Date: 20080912
  Transmission Date: 20090109
  Serious: Yes (Hospitalization)
  Sender: FDA-Public Use
  Company Number: JP-ABBOTT-08P-087-0463701-00

PATIENT
  Age: 71 Year
  Sex: Male

DRUGS (13)
  1. LEUPROLIDE ACETATE [Suspect]
     Indication: PROSTATE CANCER STAGE II
     Route: 058
     Dates: start: 20060405
  2. LIVOSTIN [Concomitant]
     Indication: SEASONAL ALLERGY
     Route: 047
     Dates: start: 20060428
  3. VALSARTAN [Concomitant]
     Indication: HYPERTENSION
     Route: 048
  4. AMLODIPINE BESYLATE [Concomitant]
     Indication: HYPERTENSION
     Route: 048
     Dates: end: 20060923
  5. GLIMEPIRIDE [Concomitant]
     Indication: DIABETES MELLITUS
     Route: 048
     Dates: end: 20060922
  6. METFORMIN HCL [Concomitant]
     Indication: DIABETES MELLITUS
     Route: 048
  7. DOXAZOSIN MESYLATE [Concomitant]
     Indication: HYPERTENSION
     Route: 048
  8. NIPRADOLOL [Concomitant]
     Indication: HYPERTENSION
     Route: 048
     Dates: start: 20060928
  9. FUROSEMIDE [Concomitant]
     Indication: HYPERTENSION
     Route: 048
     Dates: start: 20061002
  10. NIFEDIPINE [Concomitant]
     Indication: HYPERTENSION
     Route: 048
     Dates: start: 20061003
  11. INSULIN LISPRO [Concomitant]
     Indication: DIABETES MELLITUS
     Dosage: 22-30 UT
     Route: 058
     Dates: start: 20060922
  12. BICALUTAMIDE [Concomitant]
     Indication: PROSTATE CANCER STAGE II
     Route: 048
     Dates: start: 20070307, end: 20080206
  13. TRICHLORMETHIAZIDE [Concomitant]
     Indication: HYPERTENSION
     Route: 048
     Dates: start: 20061205

REACTIONS (5)
  - ANAEMIA [None]
  - DIABETES MELLITUS [None]
  - HYPOGLYCAEMIA [None]
  - INSOMNIA [None]
  - PRURITUS [None]
